FAERS Safety Report 9448936 (Version 1)
Quarter: 2013Q3

REPORT INFORMATION
  Report Type: Spontaneous
  Country: US (occurrence: US)
  Receive Date: 20130808
  Receipt Date: 20130808
  Transmission Date: 20140515
  Serious: Yes (Other)
  Sender: FDA-Public Use
  Company Number: US-BAYER-2013-095397

PATIENT
  Sex: Female
  Weight: 102 kg

DRUGS (1)
  1. ALEVE CAPLET [Suspect]
     Dosage: 30 DF, UNK
     Route: 048

REACTIONS (2)
  - Overdose [None]
  - Abnormal behaviour [Not Recovered/Not Resolved]
